FAERS Safety Report 8570809-1 (Version None)
Quarter: 2012Q3

REPORT INFORMATION
  Report Type: 
  Country: None (occurrence: None)
  Receive Date: 20120806
  Receipt Date: 20120724
  Transmission Date: 20120928
  Serious: Yes (Other)
  Sender: FDA-Public Use
  Company Number: BR-AMGEN-BRASP2012047643

PATIENT
  Age: 55 Year
  Sex: Male
  Weight: 87 kg

DRUGS (3)
  1. ENBREL [Suspect]
     Indication: PSORIASIS
     Dosage: UNK
     Route: 058
     Dates: start: 20101201
  2. ENALAPRIL MALEATE [Concomitant]
  3. ENBREL [Suspect]
     Dosage: 50 MG, 1X/WEEK
     Route: 058
     Dates: start: 20111201, end: 20120201

REACTIONS (1)
  - ABDOMINAL MASS [None]
